FAERS Safety Report 16056221 (Version 5)
Quarter: 2019Q2

REPORT INFORMATION
  Report Type: Spontaneous
  Country: US (occurrence: US)
  Receive Date: 20190311
  Receipt Date: 20190415
  Transmission Date: 20190711
  Serious: No
  Sender: FDA-Public Use
  Company Number: US-009507513-1903USA003317

PATIENT
  Age: 22 Year
  Sex: Female
  Weight: 72.11 kg

DRUGS (2)
  1. NEXPLANON [Suspect]
     Active Substance: ETONOGESTREL
     Indication: CONTRACEPTION
     Dosage: 1 ROD
     Route: 059
     Dates: start: 20130517, end: 20160607
  2. NEXPLANON [Suspect]
     Active Substance: ETONOGESTREL
     Dosage: IMPLANT
     Route: 058
     Dates: start: 20160607

REACTIONS (5)
  - Incorrect product administration duration [Unknown]
  - Menstrual disorder [Unknown]
  - Weight increased [Unknown]
  - Device deployment issue [Unknown]
  - Complication of device removal [Unknown]

NARRATIVE: CASE EVENT DATE: 20160508
